FAERS Safety Report 11596434 (Version 1)
Quarter: 2015Q4

REPORT INFORMATION
  Report Type: Spontaneous
  Country: ES (occurrence: None)
  Receive Date: 20151005
  Receipt Date: 20151005
  Transmission Date: 20160304
  Serious: Yes (Disabling)
  Sender: FDA-Public Use
  Company Number: None

PATIENT
  Age: 56 Year
  Sex: Male
  Weight: 76 kg

DRUGS (6)
  1. PROPECIA [Suspect]
     Active Substance: FINASTERIDE
     Indication: ALOPECIA
     Dosage: 1 PILL
     Route: 048
  2. CALCIUM [Concomitant]
     Active Substance: CALCIUM
  3. OMEGA 3 [Concomitant]
     Active Substance: OMEGA-3 FATTY ACIDS
  4. IRON [Concomitant]
     Active Substance: IRON
  5. MELATONINE [Concomitant]
     Active Substance: MELATONIN
  6. INDUX [Concomitant]

REACTIONS (3)
  - Blood testosterone decreased [None]
  - Osteoporosis [None]
  - Erectile dysfunction [None]

NARRATIVE: CASE EVENT DATE: 20151003
